FAERS Safety Report 24986613 (Version 3)
Quarter: 2025Q3

REPORT INFORMATION
  Report Type: Report from Study
  Country: US (occurrence: US)
  Receive Date: 20250219
  Receipt Date: 20250810
  Transmission Date: 20251021
  Serious: Yes (Hospitalization, Other)
  Sender: ALEXION PHARMACEUTICALS
  Company Number: US-AstraZeneca-CH-00809871A

PATIENT
  Age: 44 Year
  Sex: Female
  Weight: 128.82 kg

DRUGS (5)
  1. TEZEPELUMAB [Suspect]
     Active Substance: TEZEPELUMAB
     Indication: Asthma
     Dosage: 210  MG/ML Q4W
     Dates: start: 20240618
  2. TEZEPELUMAB [Suspect]
     Active Substance: TEZEPELUMAB
  3. BUDESONIDE [Suspect]
     Active Substance: BUDESONIDE
     Route: 065
  4. SYMBICORT [Suspect]
     Active Substance: BUDESONIDE\FORMOTEROL FUMARATE DIHYDRATE
     Route: 065
  5. DUONEB [Concomitant]
     Active Substance: ALBUTEROL SULFATE\IPRATROPIUM BROMIDE
     Route: 065

REACTIONS (31)
  - Bronchitis [Unknown]
  - Pneumonia [Unknown]
  - Cough [Unknown]
  - Pyrexia [Unknown]
  - Hypoxia [Unknown]
  - Blood osmolarity decreased [Recovering/Resolving]
  - Wheezing [Recovering/Resolving]
  - Asthma [Recovering/Resolving]
  - Nasal congestion [Recovering/Resolving]
  - Tachycardia [Recovering/Resolving]
  - Obesity [Unknown]
  - Atelectasis [Unknown]
  - Sputum discoloured [Unknown]
  - Malaise [Unknown]
  - Rhinovirus infection [Unknown]
  - Dyspnoea exertional [Unknown]
  - Obstructive airways disorder [Unknown]
  - Dyspnoea [Unknown]
  - Condition aggravated [Unknown]
  - Pain [Unknown]
  - Alopecia [Unknown]
  - Arthralgia [Unknown]
  - Swelling [Unknown]
  - Sepsis [Unknown]
  - COVID-19 [Unknown]
  - Chest pain [Unknown]
  - Leukocytosis [Unknown]
  - Illness [Unknown]
  - Pulmonary embolism [Unknown]
  - Hypoxia [Unknown]
  - Vital capacity [Unknown]

NARRATIVE: CASE EVENT DATE: 20240828
